FAERS Safety Report 11679494 (Version 3)
Quarter: 2015Q4

REPORT INFORMATION
  Report Type: Spontaneous
  Country: JP (occurrence: JP)
  Receive Date: 20151028
  Receipt Date: 20151122
  Transmission Date: 20160304
  Serious: Yes (Other)
  Sender: FDA-Public Use
  Company Number: JP-009507513-1510JPN013405

PATIENT

DRUGS (6)
  1. DECADRON (DEXAMETHASONE SODIUM PHOSPHATE) [Suspect]
     Active Substance: DEXAMETHASONE SODIUM PHOSPHATE
     Indication: MARFAN^S SYNDROME
  2. METHOTREXATE [Suspect]
     Active Substance: METHOTREXATE
     Indication: MARFAN^S SYNDROME
  3. METHOTREXATE [Suspect]
     Active Substance: METHOTREXATE
     Indication: HAEMOLYTIC URAEMIC SYNDROME
     Dosage: DAILY DOSE UNKNOWN
     Route: 065
  4. DECADRON (DEXAMETHASONE SODIUM PHOSPHATE) [Suspect]
     Active Substance: DEXAMETHASONE SODIUM PHOSPHATE
     Indication: HAEMOLYTIC URAEMIC SYNDROME
     Dosage: DAILY DOSE UNKNOWN
     Route: 065
  5. CYCLOSPORINE. [Suspect]
     Active Substance: CYCLOSPORINE
     Indication: MARFAN^S SYNDROME
  6. CYCLOSPORINE. [Suspect]
     Active Substance: CYCLOSPORINE
     Indication: HAEMOLYTIC URAEMIC SYNDROME
     Dosage: DAILY DOSE UNKNOWN
     Route: 065

REACTIONS (2)
  - Off label use [Unknown]
  - Posterior reversible encephalopathy syndrome [Unknown]
